FAERS Safety Report 5746328-4 (Version None)
Quarter: 2008Q2

REPORT INFORMATION
  Report Type: 
  Country: None (occurrence: None)
  Receive Date: 20080520
  Receipt Date: 20080520
  Transmission Date: 20081010
  Serious: Yes (Hospitalization)
  Sender: FDA-Public Use
  Company Number: None

PATIENT
  Sex: Male
  Weight: 118.3888 kg

DRUGS (1)
  1. NIASPAN [Suspect]
     Indication: DYSLIPIDAEMIA
     Dosage: 1000 MG   Q DAY          PO
     Route: 048
     Dates: start: 20080307, end: 20080516

REACTIONS (5)
  - ILEUS [None]
  - NAUSEA [None]
  - PYREXIA [None]
  - URTICARIA [None]
  - VOMITING [None]
